FAERS Safety Report 20462629 (Version 2)
Quarter: 2022Q1

REPORT INFORMATION
  Report Type: Report from Study
  Country: EG (occurrence: EG)
  Receive Date: 20220211
  Receipt Date: 20220228
  Transmission Date: 20220423
  Serious: Yes (Other)
  Sender: FDA-Public Use
  Company Number: EG-NOVARTISPH-NVSC2022EG029202

PATIENT
  Age: 32 Year
  Sex: Female

DRUGS (1)
  1. GILENYA [Suspect]
     Active Substance: FINGOLIMOD HYDROCHLORIDE
     Indication: Multiple sclerosis
     Dosage: 0.5 MG, QD
     Route: 048
     Dates: start: 2018, end: 202001

REACTIONS (15)
  - Multiple sclerosis relapse [Recovered/Resolved]
  - Fatigue [Recovered/Resolved]
  - Pain [Recovered/Resolved]
  - COVID-19 [Recovered/Resolved]
  - Dyspnoea [Recovered/Resolved]
  - Cough [Recovered/Resolved]
  - Anosmia [Recovered/Resolved]
  - Ageusia [Recovered/Resolved]
  - Fatigue [Recovered/Resolved]
  - Pain [Recovered/Resolved]
  - Tension [Recovered/Resolved]
  - Maternal exposure during pregnancy [Unknown]
  - Normal newborn [Unknown]
  - Headache [Recovered/Resolved]
  - Headache [Recovered/Resolved]

NARRATIVE: CASE EVENT DATE: 20200101
